FAERS Safety Report 5024360-6 (Version None)
Quarter: 2006Q2

REPORT INFORMATION
  Report Type: 
  Country: None (occurrence: None)
  Receive Date: 20060426
  Receipt Date: 20060228
  Transmission Date: 20061013
  Serious: Yes (Other)
  Sender: FDA-Public Use
  Company Number: 2006031850

PATIENT
  Age: 41 Year
  Sex: Female
  Weight: 49.8957 kg

DRUGS (4)
  1. LYRICA [Suspect]
     Indication: FACIAL PAIN
     Dosage: SEE IMAGE
     Route: 048
     Dates: start: 20060201, end: 20060228
  2. LYRICA [Suspect]
     Indication: FACIAL PAIN
     Dosage: SEE IMAGE
     Route: 048
     Dates: start: 20060216
  3. PREDNISONE TAB [Suspect]
     Indication: HERPES ZOSTER
     Dosage: DAILY, OPTHALMIC
     Route: 047
     Dates: start: 20060101, end: 20060228
  4. ZOVIRAX [Concomitant]

REACTIONS (9)
  - BLINDNESS [None]
  - DRUG INEFFECTIVE [None]
  - DYSPNOEA [None]
  - FATIGUE [None]
  - HEADACHE [None]
  - INSOMNIA [None]
  - NAUSEA [None]
  - RESTLESSNESS [None]
  - VISION BLURRED [None]
